FAERS Safety Report 12912824 (Version 10)
Quarter: 2022Q2

REPORT INFORMATION
  Report Type: Spontaneous
  Country: US (occurrence: US)
  Receive Date: 20161104
  Receipt Date: 20220425
  Transmission Date: 20220721
  Serious: No
  Sender: FDA-Public Use
  Company Number: US-PFIZER INC-2016229973

PATIENT
  Age: 67 Year
  Sex: Female
  Weight: 117 kg

DRUGS (27)
  1. LYRICA [Suspect]
     Active Substance: PREGABALIN
     Indication: Spinal stenosis
     Dosage: 150 MG, DAILY
     Route: 048
     Dates: start: 201603
  2. LYRICA [Suspect]
     Active Substance: PREGABALIN
     Indication: Back pain
     Dosage: 150 MG, 1 CAPSULE TID (THREE TIMES A DAY)
     Route: 048
     Dates: start: 20190116
  3. LYRICA [Suspect]
     Active Substance: PREGABALIN
     Indication: Neuralgia
     Dosage: 150 MG, 1 CAPSULE TID (THREE TIMES A DAY)
     Route: 048
     Dates: start: 20210622
  4. ACETAMINOPHEN [Concomitant]
     Active Substance: ACETAMINOPHEN
     Indication: Osteoarthritis
     Dosage: 1000 MG (2 X 500MG TABLETS), EVERY 4 HOURS, AS NEEDED
     Route: 048
  5. BENADRYL [Concomitant]
     Active Substance: DIPHENHYDRAMINE HYDROCHLORIDE
     Indication: Hypersensitivity
     Dosage: 50 MG (2 X 25MG CAPSULES), 3 TIMES A DAY AS NEEDED
     Route: 048
  6. BIOTIN [Concomitant]
     Active Substance: BIOTIN
     Indication: Alopecia
     Dosage: 10 MG (2 X 5MG), DAILY
     Route: 048
  7. BIOTIN [Concomitant]
     Active Substance: BIOTIN
     Dosage: 1 DF, DAILY (10000 U DAILY)
  8. CALCIUM CITRATE\VITAMIN D [Concomitant]
     Active Substance: CALCIUM CITRATE\VITAMIN D
     Indication: Osteopenia
     Dosage: UNK [CALCIUM 1200 MG /VITAMIN D 500 IU]
     Route: 048
  9. CALCIUM CITRATE\VITAMIN D [Concomitant]
     Active Substance: CALCIUM CITRATE\VITAMIN D
     Dosage: UNK [CALCIUM 1200-1700 MG /VITAMIN D 500-800 IU]
     Dates: start: 2002
  10. MINERALS\VITAMINS [Concomitant]
     Active Substance: MINERALS\VITAMINS
     Indication: Nutritional supplementation
     Dosage: 1 DF, DAILY
     Route: 048
  11. MINERALS\VITAMINS [Concomitant]
     Active Substance: MINERALS\VITAMINS
     Indication: Supplementation therapy
  12. FERROUS SULFATE [Concomitant]
     Active Substance: FERROUS SULFATE
     Dosage: 325 MG, DAILY
     Route: 048
  13. HYDROCHLOROTHIAZIDE\TRIAMTERENE [Concomitant]
     Active Substance: HYDROCHLOROTHIAZIDE\TRIAMTERENE
     Indication: Fluid retention
     Dosage: 1 DF, DAILY
     Route: 048
  14. HYDROCHLOROTHIAZIDE\TRIAMTERENE [Concomitant]
     Active Substance: HYDROCHLOROTHIAZIDE\TRIAMTERENE
     Indication: Inner ear disorder
  15. IBUPROFEN [Concomitant]
     Active Substance: IBUPROFEN
     Indication: Osteoarthritis
     Dosage: 400 MG, 1-2 TABLETS, EVERY 8 HOURS, AS NEEDED
     Route: 048
  16. IBUPROFEN [Concomitant]
     Active Substance: IBUPROFEN
     Dosage: UNK, AS NEEDED [400 MG X 1-2 EA 4 HR (8) ALTERNATE WITH TYLENOL]
  17. KETOCONAZOLE [Concomitant]
     Active Substance: KETOCONAZOLE
     Dosage: 2-3 TIMES PER WEEK
     Route: 061
     Dates: end: 201604
  18. MECLIZINE HYDROCHLORIDE [Concomitant]
     Active Substance: MECLIZINE HYDROCHLORIDE
     Indication: Inner ear disorder
     Dosage: 25 MG, 1-2 DAILY, AS NEEDED
     Route: 048
  19. MORPHINE SULFATE [Concomitant]
     Active Substance: MORPHINE SULFATE
     Indication: Pain
     Dosage: 25 MG, DAILY, AS NEEDED
     Route: 048
     Dates: end: 201612
  20. OMEPRAZOLE [Concomitant]
     Active Substance: OMEPRAZOLE
     Indication: Gastrooesophageal reflux disease
     Dosage: 40 MG, DAILY
     Route: 048
  21. PREMPRO [Concomitant]
     Active Substance: ESTROGENS, CONJUGATED\MEDROXYPROGESTERONE ACETATE
     Indication: Menopausal disorder
     Dosage: 1 TABLET, ALTERNATE DAY (CONJUGATED ESTROGENS 0.625MG/MEDROXYPROGESTERONE 2.5MG)
     Route: 048
     Dates: end: 201609
  22. SYNTHROID [Concomitant]
     Active Substance: LEVOTHYROXINE SODIUM
     Indication: Hypothyroidism
     Dosage: 125 UG, DAILY
     Route: 048
  23. GELATIN [Concomitant]
     Active Substance: GELATIN
     Indication: Nail disorder
     Dosage: 650 MG, 1X/DAY
  24. TYLENOL [Concomitant]
     Active Substance: ACETAMINOPHEN
     Indication: Arthritis
     Dosage: UNK [500 MG X 2 EA 4 HR ALTERNATE]
  25. DOCUSATE [Concomitant]
     Active Substance: DOCUSATE
     Indication: Constipation
     Dosage: 1 DF, DAILY (OCCASIONALLY NOW)
  26. DIPHENHYDRAMINE [Concomitant]
     Active Substance: DIPHENHYDRAMINE
     Indication: Hypersensitivity
     Dosage: 2 DF, [2 CAPS EACH (4HR) X 2/DAY]
  27. SIMVASTATIN [Concomitant]
     Active Substance: SIMVASTATIN
     Dosage: 20 MG, DAILY
     Route: 048

REACTIONS (4)
  - Weight increased [Not Recovered/Not Resolved]
  - Indifference [Recovering/Resolving]
  - Increased appetite [Not Recovered/Not Resolved]
  - Abdominal distension [Not Recovered/Not Resolved]

NARRATIVE: CASE EVENT DATE: 20160301
